FAERS Safety Report 9258858 (Version 1)
Quarter: 2013Q2

REPORT INFORMATION
  Report Type: Spontaneous
  Country: US (occurrence: US)
  Receive Date: 20130426
  Receipt Date: 20130426
  Transmission Date: 20140414
  Serious: Yes (Other)
  Sender: FDA-Public Use
  Company Number: US-GLAXOSMITHKLINE-A1021376A

PATIENT
  Age: 57 Year
  Sex: Male

DRUGS (14)
  1. SORIATANE [Suspect]
     Indication: PRODUCT USED FOR UNKNOWN INDICATION
     Route: 065
  2. ENBREL [Suspect]
     Indication: PSORIATIC ARTHROPATHY
     Dosage: 50MG TWO TIMES PER WEEK
     Route: 065
     Dates: start: 20050414, end: 20070125
  3. BISOPROLOL + HYDROCHLOROTHIAZIDE [Concomitant]
  4. CELEBREX [Concomitant]
  5. ACTONEL [Concomitant]
  6. ALBUTEROL [Concomitant]
  7. FLOVENT [Concomitant]
  8. CALCIUM [Concomitant]
  9. GLUCOSAMINE [Concomitant]
  10. CHONDROITIN [Concomitant]
  11. ELOCON [Concomitant]
  12. FOLIC ACID [Concomitant]
  13. OMEPRAZOLE [Concomitant]
  14. METHOTREXATE [Concomitant]

REACTIONS (5)
  - Colon cancer [Recovered/Resolved]
  - Sebaceous hyperplasia [Unknown]
  - Dermatitis [Unknown]
  - Psoriasis [Unknown]
  - Guttate psoriasis [Unknown]
